FAERS Safety Report 4855207-6 (Version None)
Quarter: 2005Q4

REPORT INFORMATION
  Report Type: 
  Country: None (occurrence: None)
  Receive Date: 20051215
  Receipt Date: 20051005
  Transmission Date: 20060501
  Serious: Yes (Death, Other)
  Sender: FDA-Public Use
  Company Number: US-MERCK-0510USA04519

PATIENT
  Age: 80 Year
  Sex: Female

DRUGS (5)
  1. VIOXX [Suspect]
     Indication: ARTHRITIS
     Route: 048
     Dates: start: 19990101, end: 19991219
  2. [THERAPY UNSPECIFIED] [Concomitant]
     Route: 065
  3. LANOXIN [Concomitant]
     Route: 065
  4. PROVENTIL [Concomitant]
     Route: 065
  5. VIOXX [Suspect]
     Route: 048
     Dates: start: 19990101, end: 19991219

REACTIONS (5)
  - ARTERIOSCLEROSIS [None]
  - CARDIOPULMONARY FAILURE [None]
  - CEREBROVASCULAR ACCIDENT [None]
  - CHRONIC OBSTRUCTIVE PULMONARY DISEASE [None]
  - THROMBOSIS [None]
